FAERS Safety Report 5912330-2 (Version None)
Quarter: 2008Q4

REPORT INFORMATION
  Report Type: 
  Country: None (occurrence: None)
  Receive Date: 20081008
  Receipt Date: 20081002
  Transmission Date: 20090506
  Serious: Yes (Hospitalization)
  Sender: FDA-Public Use
  Company Number: US-MERCK-0710USA04720

PATIENT
  Age: 63 Year
  Sex: Female

DRUGS (2)
  1. FOSAMAX [Suspect]
     Route: 048
     Dates: start: 19980101, end: 20040101
  2. FOSAMAX PLUS D [Suspect]
     Route: 047

REACTIONS (15)
  - CELLULITIS [None]
  - DEPRESSION [None]
  - DIABETES MELLITUS [None]
  - DYSPHAGIA [None]
  - GASTROOESOPHAGEAL REFLUX DISEASE [None]
  - GOITRE [None]
  - HYPERCALCAEMIA [None]
  - HYPERPARATHYROIDISM PRIMARY [None]
  - HYPERTENSION [None]
  - INSOMNIA [None]
  - NEPHROLITHIASIS [None]
  - PAIN IN JAW [None]
  - RESTRICTIVE PULMONARY DISEASE [None]
  - THYROID DISORDER [None]
  - URINARY TRACT INFECTION [None]
